FAERS Safety Report 5128237-7 (Version None)
Quarter: 2006Q4

REPORT INFORMATION
  Report Type: 
  Country: None (occurrence: None)
  Receive Date: 20061011
  Receipt Date: 20060216
  Transmission Date: 20070319
  Serious: Yes (Other)
  Sender: FDA-Public Use
  Company Number: CHNY2006BR00807

PATIENT
  Age: 4 Month
  Sex: Female

DRUGS (1)
  1. AGASTEN (NCH) (CLEMASTINE HYDROGEN FUMARATE) SYRUP [Suspect]
     Dosage: TWICE DAILY, ORAL
     Route: 048

REACTIONS (2)
  - HYPERSOMNIA [None]
  - SLEEP APNOEA SYNDROME [None]
